FAERS Safety Report 6084948-0 (Version None)
Quarter: 2009Q1

REPORT INFORMATION
  Report Type: 
  Country: None (occurrence: None)
  Receive Date: 20090209
  Receipt Date: 20090204
  Transmission Date: 20090719
  Serious: Yes (Death)
  Sender: FDA-Public Use
  Company Number: AE-2008-020

PATIENT
  Age: 52 Year
  Sex: Female

DRUGS (6)
  1. METOCLOPRAMIDE HYDROCHLORIDE [Suspect]
     Dosage: ORAL
     Route: 048
  2. FENTANYL CITRATE [Suspect]
     Dosage: TRANSDERMAL
     Route: 062
  3. METHADONE HCL [Suspect]
     Dosage: ORAL
     Route: 048
  4. OXYCODONE HCL [Suspect]
     Dosage: ORAL
     Route: 048
  5. PROMETHAZINE [Suspect]
     Dosage: ORAL
     Route: 048
  6. CLONIDINE [Suspect]
     Dosage: ORAL
     Route: 048

REACTIONS (1)
  - DRUG ABUSE [None]
